FAERS Safety Report 9629450 (Version 3)
Quarter: 2014Q1

REPORT INFORMATION
  Report Type: Spontaneous
  Country: US (occurrence: US)
  Receive Date: 20131017
  Receipt Date: 20140224
  Transmission Date: 20141002
  Serious: Yes (Hospitalization, Other)
  Sender: FDA-Public Use
  Company Number: US-BAXTER-2013BAX040790

PATIENT
  Age: 82 Year
  Sex: Female

DRUGS (4)
  1. DIANEAL LOW CALCIUM [Suspect]
     Indication: RENAL FAILURE CHRONIC
     Route: 033
  2. DIANEAL LOW CALCIUM [Suspect]
     Indication: PERITONEAL DIALYSIS
  3. DIANEAL LOW CALCIUM [Suspect]
     Indication: RENAL FAILURE CHRONIC
     Route: 033
  4. DIANEAL LOW CALCIUM [Suspect]
     Indication: PERITONEAL DIALYSIS

REACTIONS (7)
  - Vascular occlusion [Not Recovered/Not Resolved]
  - Angiopathy [Unknown]
  - Device occlusion [Recovering/Resolving]
  - Fall [Recovering/Resolving]
  - Hip fracture [Recovering/Resolving]
  - Urinary tract infection [Recovering/Resolving]
  - White blood cell count abnormal [Recovering/Resolving]
